FAERS Safety Report 19402523 (Version 2)
Quarter: 2021Q3

REPORT INFORMATION
  Report Type: Spontaneous
  Country: JP (occurrence: JP)
  Receive Date: 20210610
  Receipt Date: 20210712
  Transmission Date: 20211014
  Serious: Yes (Hospitalization, Other)
  Sender: FDA-Public Use
  Company Number: JP-TAKEDA-2021TUS036163

PATIENT
  Age: 6 Decade
  Sex: Male

DRUGS (1)
  1. LIALDA [Suspect]
     Active Substance: MESALAMINE
     Indication: COLITIS ULCERATIVE
     Dosage: 4800 MILLIGRAM, QD
     Route: 048

REACTIONS (5)
  - Septic shock [Unknown]
  - Pancreatic carcinoma [Unknown]
  - Frequent bowel movements [Unknown]
  - Autoimmune pancreatitis [Unknown]
  - Pyrexia [Unknown]
